FAERS Safety Report 9498860 (Version 4)
Quarter: 2015Q4

REPORT INFORMATION
  Report Type: Report from Study
  Country: CA (occurrence: CA)
  Receive Date: 20130904
  Receipt Date: 20151130
  Transmission Date: 20160305
  Serious: Yes (Hospitalization, Other)
  Sender: FDA-Public Use
  Company Number: CA-ROCHE-1132763

PATIENT
  Age: 61 Year
  Sex: Male
  Weight: 78 kg

DRUGS (10)
  1. CELEBREX [Concomitant]
     Active Substance: CELECOXIB
  2. ATIVAN [Concomitant]
     Active Substance: LORAZEPAM
  3. FOLIC ACID. [Concomitant]
     Active Substance: FOLIC ACID
  4. ROSUVASTATIN [Concomitant]
     Active Substance: ROSUVASTATIN
  5. PAROXETINE [Concomitant]
     Active Substance: PAROXETINE\PAROXETINE HYDROCHLORIDE
  6. METHOTREXATE [Concomitant]
     Active Substance: METHOTREXATE
     Route: 065
  7. PREDNISONE. [Concomitant]
     Active Substance: PREDNISONE
  8. CRESTOR [Concomitant]
     Active Substance: ROSUVASTATIN CALCIUM
  9. ACTEMRA [Suspect]
     Active Substance: TOCILIZUMAB
     Indication: RHEUMATOID ARTHRITIS
     Route: 042
     Dates: start: 20101119, end: 20120727
  10. PAXIL (CANADA) [Concomitant]

REACTIONS (9)
  - Arthritis infective [Unknown]
  - Arthralgia [Recovered/Resolved]
  - Wrist surgery [Unknown]
  - Pain in extremity [Recovered/Resolved]
  - Arthritis bacterial [Unknown]
  - Infection [Not Recovered/Not Resolved]
  - Influenza like illness [Not Recovered/Not Resolved]
  - Oedema [Recovered/Resolved]
  - Pain [Not Recovered/Not Resolved]

NARRATIVE: CASE EVENT DATE: 201207
